FAERS Safety Report 8615352-6 (Version None)
Quarter: 2012Q3

REPORT INFORMATION
  Report Type: 
  Country: None (occurrence: None)
  Receive Date: 20120823
  Receipt Date: 20120814
  Transmission Date: 20120928
  Serious: Yes (Hospitalization)
  Sender: FDA-Public Use
  Company Number: FR-009507513-1208FRA007416

PATIENT

DRUGS (13)
  1. RAMIPRIL [Concomitant]
     Dosage: 1.25 MG, QD
     Route: 048
  2. ATORVASTATIN [Concomitant]
     Dosage: 10 MG, QD
     Route: 048
  3. VALSARTAN [Concomitant]
     Dosage: 160 MG, QD
     Route: 048
  4. NEXAVAR [Suspect]
     Indication: HEPATIC NEOPLASM MALIGNANT
     Dosage: 400 MG, BID
     Route: 048
     Dates: start: 20120404, end: 20120413
  5. RABEPRAZOLE SODIUM [Concomitant]
     Route: 048
  6. PREDNISONE TAB [Concomitant]
     Indication: RHEUMATOID ARTHRITIS
     Route: 048
  7. NOVATREX (AZITHROMYCIN) [Concomitant]
     Dosage: 12.5 MG, QW
     Route: 048
  8. NOROXIN [Suspect]
     Indication: URINARY TRACT INFECTION
     Dosage: 400 MG, BID
     Route: 048
     Dates: start: 20120411, end: 20120417
  9. ATARAX [Concomitant]
     Dosage: 50 MG, QD
     Route: 048
  10. DILTIAZEM HCL [Concomitant]
     Dosage: 200 MG, QD
     Route: 048
  11. FOLIC ACID [Concomitant]
     Dosage: 5 MG, QW
     Route: 048
  12. NEXAVAR [Suspect]
     Dosage: 200 MG, BID
     Route: 048
     Dates: start: 20120501, end: 20120519
  13. GLIMEPIRIDE [Concomitant]
     Dosage: 2 MG, QD
     Route: 048

REACTIONS (2)
  - VOMITING [None]
  - ABDOMINAL PAIN UPPER [None]
